FAERS Safety Report 10820833 (Version 2)
Quarter: 2015Q1

REPORT INFORMATION
  Report Type: Spontaneous
  Country: BR (occurrence: None)
  Receive Date: 20150213
  Receipt Date: 20150317
  Transmission Date: 20150721
  Serious: No
  Sender: FDA-Public Use
  Company Number: BR-20150010

PATIENT
  Age: 38 Year
  Sex: 0
  Weight: 75 kg

DRUGS (2)
  1. DOTAREM [Suspect]
     Active Substance: GADOTERATE MEGLUMINE
     Indication: ANGIOGRAM
     Dosage: NOT OTHERWISE SPECIFIED
     Route: 042
     Dates: start: 20150201, end: 20150201
  2. DOTAREM [Suspect]
     Active Substance: GADOTERATE MEGLUMINE
     Indication: NUCLEAR MAGNETIC RESONANCE IMAGING BRAIN
     Dosage: NOT OTHERWISE SPECIFIED
     Route: 042
     Dates: start: 20150201, end: 20150201

REACTIONS (3)
  - Discomfort [None]
  - Dry mouth [None]
  - Headache [None]

NARRATIVE: CASE EVENT DATE: 20150201
